FAERS Safety Report 9564441 (Version 1)
Quarter: 2013Q3

REPORT INFORMATION
  Report Type: Spontaneous
  Country: US (occurrence: US)
  Receive Date: 20130930
  Receipt Date: 20130930
  Transmission Date: 20140515
  Serious: Yes (Other)
  Sender: FDA-Public Use
  Company Number: US-JNJFOC-20130914335

PATIENT
  Age: 8 Year
  Sex: 0

DRUGS (1)
  1. ASPIRIN [Suspect]
     Indication: IMMUNE TOLERANCE INDUCTION
     Route: 065

REACTIONS (4)
  - Chest discomfort [Unknown]
  - Throat tightness [Unknown]
  - Swelling face [Unknown]
  - Cough [Unknown]
